FAERS Safety Report 7190052-0 (Version None)
Quarter: 2010Q4

REPORT INFORMATION
  Report Type: 
  Country: None (occurrence: None)
  Receive Date: 20101223
  Receipt Date: 20101215
  Transmission Date: 20110411
  Serious: Yes (Other)
  Sender: FDA-Public Use
  Company Number: GB-JNJFOC-20101108779

PATIENT
  Sex: Female

DRUGS (2)
  1. RISPERDAL CONSTA [Suspect]
     Indication: BIPOLAR DISORDER
     Route: 030
  2. RISPERDAL CONSTA [Suspect]
     Route: 030

REACTIONS (5)
  - CONDITION AGGRAVATED [None]
  - EXCESSIVE EYE BLINKING [None]
  - EYE MOVEMENT DISORDER [None]
  - MUSCLE TWITCHING [None]
  - STRABISMUS [None]
